FAERS Safety Report 18521926 (Version 2)
Quarter: 2020Q4

REPORT INFORMATION
  Report Type: Report from Study
  Country: US (occurrence: US)
  Receive Date: 20201119
  Receipt Date: 20201123
  Transmission Date: 20210114
  Serious: No
  Sender: FDA-Public Use
  Company Number: US-GLAXOSMITHKLINE-US2020AMR225416

PATIENT
  Age: 59 Year
  Sex: Male

DRUGS (1)
  1. BELANTAMAB MAFODOTIN. [Suspect]
     Active Substance: BELANTAMAB MAFODOTIN
     Indication: PRODUCT USED FOR UNKNOWN INDICATION
     Dosage: 2.5 MG/KG EVERY 21 DAYS
     Dates: start: 20201109, end: 202011

REACTIONS (7)
  - Ocular toxicity [Unknown]
  - Vision blurred [Unknown]
  - Night blindness [Unknown]
  - Keratopathy [Unknown]
  - Diplopia [Unknown]
  - Corneal disorder [Unknown]
  - Visual acuity reduced [Unknown]

NARRATIVE: CASE EVENT DATE: 20201109
